FAERS Safety Report 19093046 (Version 1)
Quarter: 2021Q2

REPORT INFORMATION
  Report Type: Spontaneous
  Country: US (occurrence: US)
  Receive Date: 20210405
  Receipt Date: 20210405
  Transmission Date: 20210717
  Serious: Yes (Hospitalization)
  Sender: FDA-Public Use
  Company Number: None

PATIENT
  Age: 57 Year
  Sex: Female

DRUGS (11)
  1. OXYCODONE [Concomitant]
     Active Substance: OXYCODONE
  2. ALLOPURINOL. [Concomitant]
     Active Substance: ALLOPURINOL
  3. CLONOINE [Concomitant]
  4. VIT D [Concomitant]
     Active Substance: VITAMIN D NOS
  5. CIPROFLOXACN [Concomitant]
     Active Substance: CIPROFLOXACIN
  6. METOPROL SUC [Concomitant]
  7. XELJANZ XR [Suspect]
     Active Substance: TOFACITINIB CITRATE
     Indication: PSORIATIC ARTHROPATHY
     Route: 048
     Dates: start: 20200314
  8. HYDROXYZ [Concomitant]
     Active Substance: HYDROXYZINE HYDROCHLORIDE
  9. METHOTREXATE. [Concomitant]
     Active Substance: METHOTREXATE
  10. PRAVASTATIN. [Concomitant]
     Active Substance: PRAVASTATIN
  11. TRAIM/HCTZ [Concomitant]

REACTIONS (1)
  - Spinal operation [None]

NARRATIVE: CASE EVENT DATE: 20210225
